FAERS Safety Report 9150194 (Version 2)
Quarter: 2013Q1

REPORT INFORMATION
  Report Type: Spontaneous
  Country: US (occurrence: None)
  Receive Date: 20130204
  Receipt Date: 20130319
  Transmission Date: 20140127
  Serious: Yes (Hospitalization)
  Sender: FDA-Public Use
  Company Number: DSU-2013-00907

PATIENT
  Age: 49 Year
  Sex: Female
  Weight: 90.72 kg

DRUGS (5)
  1. BENICAR [Suspect]
     Indication: HYPERTENSION
     Route: 048
  2. VIIBRYD [Suspect]
     Indication: ANXIETY
  3. DEXILANT (DEXLANSOPRAZOLE) (60 MILLIGRAM) (DEXLANSOPRAZOLE) [Concomitant]
  4. CRESTOR(ROSUVASTATIN) (20 MILLIGRAM) (ROSUVASTATIN) [Concomitant]
  5. ESTRATEST ER(METHYLTESTOSTERONE, ESTROGENS ESTERIFIED) (METHYLTESTOSTERONE, ESTROGENS ESTERIFIED) [Concomitant]

REACTIONS (7)
  - Apparent death [None]
  - Blood pressure increased [None]
  - Presyncope [None]
  - Dizziness [None]
  - Off label use [None]
  - Serotonin syndrome [None]
  - Adverse drug reaction [None]
